FAERS Safety Report 14331373 (Version 1)
Quarter: 2017Q4

REPORT INFORMATION
  Report Type: Report from Study
  Country: US (occurrence: US)
  Receive Date: 20171228
  Receipt Date: 20171228
  Transmission Date: 20180321
  Serious: Yes (Death)
  Sender: FDA-Public Use
  Company Number: US-ROCHE-1546450

PATIENT
  Age: 28 Year
  Sex: Male
  Weight: 96 kg

DRUGS (4)
  1. WARFARIN [Concomitant]
     Active Substance: WARFARIN
     Route: 065
     Dates: start: 20110425
  2. ALTEPLASE. [Suspect]
     Active Substance: ALTEPLASE
     Indication: VENOUS THROMBOSIS
     Route: 065
     Dates: start: 20110427
  3. NAPROXEN. [Suspect]
     Active Substance: NAPROXEN
     Indication: PAIN
     Route: 065
     Dates: end: 20120603
  4. TYLENOL [Suspect]
     Active Substance: ACETAMINOPHEN
     Indication: PAIN
     Route: 065
     Dates: end: 20120603

REACTIONS (1)
  - Toxicity to various agents [Fatal]
